FAERS Safety Report 19092929 (Version 2)
Quarter: 2021Q4

REPORT INFORMATION
  Report Type: Spontaneous
  Country: US (occurrence: US)
  Receive Date: 20210405
  Receipt Date: 20211118
  Transmission Date: 20220303
  Serious: Yes (Death, Other)
  Sender: FDA-Public Use
  Company Number: US-MYLANLABS-2021M1020017

PATIENT
  Age: 45 Year
  Sex: Male
  Weight: 158 kg

DRUGS (3)
  1. VALSARTAN [Suspect]
     Active Substance: VALSARTAN
     Indication: Hypertension
     Dosage: 160 MILLIGRAM
     Dates: start: 20160111, end: 20160303
  2. VALSARTAN [Suspect]
     Active Substance: VALSARTAN
     Indication: Hypertension
     Dosage: 160 MILLIGRAM
     Dates: start: 20151211, end: 20160604
  3. VALSARTAN [Suspect]
     Active Substance: VALSARTAN
     Indication: Hypertension
     Dosage: 160 MILLIGRAM
     Dates: start: 20160604, end: 20171220

REACTIONS (3)
  - Pneumonia [Fatal]
  - Renal failure [Fatal]
  - Gastric cancer [Unknown]

NARRATIVE: CASE EVENT DATE: 20171219
